FAERS Safety Report 12567113 (Version 1)
Quarter: 2016Q3

REPORT INFORMATION
  Report Type: Spontaneous
  Country: US (occurrence: US)
  Receive Date: 20160718
  Receipt Date: 20160718
  Transmission Date: 20161109
  Serious: No
  Sender: FDA-Public Use
  Company Number: US-PFIZER INC-2016340918

PATIENT
  Age: 68 Year
  Sex: Female

DRUGS (1)
  1. DEPO-PROVERA [Suspect]
     Active Substance: MEDROXYPROGESTERONE ACETATE
     Indication: HOT FLUSH
     Dosage: 500 MG, 2X/WEEK (BIWEEKLY FOR 3 WEEKS)
     Dates: end: 201510

REACTIONS (1)
  - Drug ineffective for unapproved indication [Not Recovered/Not Resolved]
